FAERS Safety Report 6574134-X (Version None)
Quarter: 2009Q4

REPORT INFORMATION
  Report Type: 
  Country: None (occurrence: None)
  Receive Date: 20091229
  Receipt Date: 20091221
  Transmission Date: 20100525
  Serious: Yes (Life-Threatening)
  Sender: FDA-Public Use
  Company Number: M2009-026

PATIENT
  Age: 49 Year
  Sex: Female

DRUGS (2)
  1. YELLOW JACKET VENOM 13 HOLLIST-STIER [Suspect]
     Indication: ALLERGY TO STING
     Dosage: 0.05 ML (FIRST INJECTION)
     Dates: start: 20090904
  2. MIXED VESPID VENOM 13 HOLLIST-STIER [Suspect]
     Indication: ALLERGY TO STING
     Dosage: 0.05 ML (FIRST INJECTION)
     Dates: start: 20090904

REACTIONS (2)
  - FALL [None]
  - HYPERSENSITIVITY [None]
